FAERS Safety Report 5534665-8 (Version None)
Quarter: 2007Q4

REPORT INFORMATION
  Report Type: 
  Country: None (occurrence: None)
  Receive Date: 20071205
  Receipt Date: 20071123
  Transmission Date: 20080405
  Serious: Yes (Hospitalization, Disabling)
  Sender: FDA-Public Use
  Company Number: US-BAUSCH-2007BL001227

PATIENT
  Age: 63 Year
  Sex: Female
  Weight: 56 kg

DRUGS (12)
  1. PREDNISOLONE SODIUM PHOSPHATE [Suspect]
     Dates: start: 20070116
  2. CIPROFLOXACIN [Suspect]
     Indication: LOWER RESPIRATORY TRACT INFECTION
     Route: 048
     Dates: start: 20070215
  3. CIPROFLOXACIN [Suspect]
     Route: 048
     Dates: end: 20070305
  4. ALENDRONIC ACID [Concomitant]
     Indication: OSTEOPOROSIS
     Route: 048
     Dates: start: 20040101
  5. CALCICHEW-D3 [Concomitant]
     Indication: OSTEOPOROSIS
     Route: 048
     Dates: start: 20040101
  6. CITALOPRAM HYDROBROMIDE [Concomitant]
     Indication: DEPRESSION
     Route: 048
     Dates: start: 20040101
  7. CO-CODAMOL [Concomitant]
     Indication: OSTEOARTHRITIS
     Route: 048
     Dates: start: 20050101
  8. MECYSTEINE [Concomitant]
     Route: 048
     Dates: start: 20070201, end: 20070326
  9. RANITIDINE HCL [Concomitant]
     Indication: GASTROOESOPHAGEAL REFLUX DISEASE
     Route: 048
     Dates: start: 20060101
  10. ALBUTEROL [Concomitant]
     Route: 049
     Dates: start: 20020101
  11. SERETIDE ^ALLEN + HANBURYS LTD^ [Concomitant]
     Route: 049
     Dates: start: 20040101
  12. TIOTROPIUM BROMIDE [Concomitant]
     Route: 049
     Dates: start: 20050101

REACTIONS (2)
  - TENDON RUPTURE [None]
  - TENDONITIS [None]
